FAERS Safety Report 20778357 (Version 3)
Quarter: 2022Q3

REPORT INFORMATION
  Report Type: Spontaneous
  Country: US (occurrence: US)
  Receive Date: 20220503
  Receipt Date: 20220714
  Transmission Date: 20221027
  Serious: Yes (Other)
  Sender: FDA-Public Use
  Company Number: US-PFIZER INC-202200591679

PATIENT
  Age: 65 Year
  Sex: Female

DRUGS (1)
  1. IBRANCE [Suspect]
     Active Substance: PALBOCICLIB
     Dosage: UNK

REACTIONS (15)
  - Breast mass [Unknown]
  - Feeling jittery [Unknown]
  - Dry skin [Unknown]
  - Fatigue [Unknown]
  - Alopecia [Unknown]
  - Stomatitis [Recovered/Resolved]
  - Skin exfoliation [Recovering/Resolving]
  - COVID-19 [Recovered/Resolved]
  - White blood cell count decreased [Unknown]
  - Dysphonia [Not Recovered/Not Resolved]
  - Paraesthesia [Unknown]
  - Asthenia [Unknown]
  - Nausea [Unknown]
  - Dizziness [Unknown]
  - Product dose omission issue [Unknown]

NARRATIVE: CASE EVENT DATE: 20220101
